FAERS Safety Report 19452125 (Version 1)
Quarter: 2021Q2

REPORT INFORMATION
  Report Type: Spontaneous
  Country: US (occurrence: US)
  Receive Date: 20210623
  Receipt Date: 20210623
  Transmission Date: 20210717
  Serious: No
  Sender: FDA-Public Use
  Company Number: US-GLENMARK PHARMACEUTICALS-2020GMK050263

PATIENT

DRUGS (3)
  1. MOMETASONE FUROATE CREAM USP, 0.1% [Suspect]
     Active Substance: MOMETASONE FUROATE
     Indication: PRURITUS
     Dosage: UNK, 3 TIMES A WEEK (45 G TUBE)
     Route: 065
     Dates: start: 2020
  2. MOMETASONE FUROATE CREAM USP, 0.1% [Suspect]
     Active Substance: MOMETASONE FUROATE
     Indication: CONDITION AGGRAVATED
     Dosage: UNK, PRN UNK, (SMALL TUBE) USES IT MOST REGULARLY AS NEEDED
     Route: 065
  3. MOMETASONE FUROATE CREAM USP, 0.1% [Suspect]
     Active Substance: MOMETASONE FUROATE
     Indication: RASH
     Dosage: UNK, PRN UNK, (COMPLAINT TUBE, 45 GM TUBE), USES IT MOST REGULARLY AS NEEDED
     Route: 065
     Dates: start: 2020

REACTIONS (4)
  - Product storage error [Unknown]
  - Product packaging quantity issue [Unknown]
  - No adverse event [Unknown]
  - Product physical issue [Unknown]

NARRATIVE: CASE EVENT DATE: 2020
